FAERS Safety Report 12906296 (Version 2)
Quarter: 2016Q4

REPORT INFORMATION
  Report Type: Report from Study
  Country: TN (occurrence: TN)
  Receive Date: 20161103
  Receipt Date: 20161108
  Transmission Date: 20170207
  Serious: Yes (Death, Other)
  Sender: FDA-Public Use
  Company Number: PHHY2016TN027060

PATIENT
  Age: 68 Year
  Sex: Male

DRUGS (1)
  1. TASIGNA [Suspect]
     Active Substance: NILOTINIB
     Indication: CHRONIC MYELOID LEUKAEMIA
     Dosage: 2 DF, BID
     Route: 048
     Dates: start: 2014, end: 201607

REACTIONS (14)
  - Blood pressure diastolic decreased [Unknown]
  - Pyrexia [Unknown]
  - Abdominal distension [Not Recovered/Not Resolved]
  - Malignant neoplasm progression [Unknown]
  - Blood pressure increased [Recovering/Resolving]
  - Peripheral swelling [Recovering/Resolving]
  - Vertigo [Recovering/Resolving]
  - Rash [Recovering/Resolving]
  - Vomiting [Not Recovered/Not Resolved]
  - Chronic myeloid leukaemia [Unknown]
  - Death [Fatal]
  - Diabetes mellitus [Recovering/Resolving]
  - Decreased appetite [Not Recovered/Not Resolved]
  - Neck pain [Recovering/Resolving]

NARRATIVE: CASE EVENT DATE: 201602
